FAERS Safety Report 6097870-0 (Version None)
Quarter: 2009Q1

REPORT INFORMATION
  Report Type: 
  Country: None (occurrence: None)
  Receive Date: 20090225
  Receipt Date: 20090213
  Transmission Date: 20090719
  Serious: Yes (Other)
  Sender: FDA-Public Use
  Company Number: 2009AL000960

PATIENT
  Age: 24 Year
  Sex: Female

DRUGS (1)
  1. FEVERALL [Suspect]
     Indication: ANALGESIA
     Dosage: 500 MG; PO
     Route: 048

REACTIONS (3)
  - SKIN SWELLING [None]
  - SKIN TIGHTNESS [None]
  - URTICARIA [None]
